FAERS Safety Report 10262274 (Version 1)
Quarter: 2014Q2

REPORT INFORMATION
  Report Type: Spontaneous
  Country: US (occurrence: None)
  Receive Date: 20140624
  Receipt Date: 20140624
  Transmission Date: 20141212
  Serious: Yes (Other)
  Sender: FDA-Public Use
  Company Number: None

PATIENT
  Age: 58 Year
  Sex: Female
  Weight: 73.48 kg

DRUGS (6)
  1. AZITHROMYCIN 250 MG [Suspect]
     Indication: SINUSITIS
     Dosage: 250 MG, 6, 2 TABLETS TODAY, THEN 1 DAILY, BY MOUTH
     Route: 048
     Dates: start: 20140611, end: 20140614
  2. SYNTHROID [Concomitant]
  3. ATORVASTATIN [Concomitant]
  4. VITAMIN D [Concomitant]
  5. FISH OIL [Concomitant]
  6. MAGNESIUM [Concomitant]

REACTIONS (4)
  - Tongue disorder [None]
  - Oropharyngeal pain [None]
  - Swollen tongue [None]
  - Product substitution issue [None]
